FAERS Safety Report 14813821 (Version 3)
Quarter: 2018Q3

REPORT INFORMATION
  Report Type: Spontaneous
  Country: US (occurrence: US)
  Receive Date: 20180426
  Receipt Date: 20180822
  Transmission Date: 20181010
  Serious: Yes (Other)
  Sender: FDA-Public Use
  Company Number: US-PFIZER INC-2018159160

PATIENT
  Age: 78 Year
  Sex: Female
  Weight: 72.6 kg

DRUGS (8)
  1. XALKORI [Suspect]
     Active Substance: CRIZOTINIB
     Indication: BONE CANCER
  2. NIFEDIPINE. [Concomitant]
     Active Substance: NIFEDIPINE
     Indication: BLOOD PRESSURE ABNORMAL
     Dosage: 30 MG, 2X/DAY (TAKE IN THE MORNING AND NIGHT)
     Route: 048
  3. GABAPENTIN. [Concomitant]
     Active Substance: GABAPENTIN
     Dosage: 600 MG, 3X/DAY
     Route: 048
     Dates: end: 2018
  4. CAPTOPRIL. [Concomitant]
     Active Substance: CAPTOPRIL
     Indication: BLOOD PRESSURE ABNORMAL
     Dosage: 12.5 MG, ONE TABLET IN THE MORNING AND A HALF TABLET AT NIGHT
  5. XALKORI [Suspect]
     Active Substance: CRIZOTINIB
     Indication: LUNG NEOPLASM MALIGNANT
     Dosage: 250 MG, 2X/DAY (12 HOURS APART)
     Route: 048
     Dates: start: 201710
  6. PAXIL [Concomitant]
     Active Substance: PAROXETINE HYDROCHLORIDE
     Indication: DEPRESSION
     Dosage: 10 MG, 1X/DAY
     Route: 048
  7. LEVOTHYROXINE. [Concomitant]
     Active Substance: LEVOTHYROXINE
     Indication: THYROID DISORDER
     Dosage: 50 UG, 1X/DAY
     Route: 048
  8. HYDROCODONE [Concomitant]
     Active Substance: HYDROCODONE
     Dosage: 5?325 MG , EVERY 4 HRS (ONE TABLET BY MOUTH 5?325 MG EVERY FOUR HOURS)
     Route: 048
     Dates: end: 2018

REACTIONS (8)
  - Drooling [Recovered/Resolved]
  - Immune system disorder [Unknown]
  - Pneumonia [Unknown]
  - Insomnia [Recovering/Resolving]
  - Glassy eyes [Recovered/Resolved]
  - Weight decreased [Unknown]
  - Intentional product misuse [Not Recovered/Not Resolved]
  - Onychoclasis [Not Recovered/Not Resolved]

NARRATIVE: CASE EVENT DATE: 201801
